FAERS Safety Report 12449202 (Version 1)
Quarter: 2016Q2

REPORT INFORMATION
  Report Type: Spontaneous
  Country: US (occurrence: US)
  Receive Date: 20160608
  Receipt Date: 20160608
  Transmission Date: 20160815
  Serious: No
  Sender: FDA-Public Use
  Company Number: US-MDT-ADR-2016-01041

PATIENT
  Age: 53 Year
  Sex: Female

DRUGS (2)
  1. MORPHINE [Suspect]
     Active Substance: MORPHINE
     Route: 037
  2. BACLOFEN. [Suspect]
     Active Substance: BACLOFEN
     Route: 037

REACTIONS (6)
  - Weight decreased [Unknown]
  - Feeling hot [Unknown]
  - Pain [Unknown]
  - Condition aggravated [Unknown]
  - Hot flush [Unknown]
  - Hyperhidrosis [Unknown]
